FAERS Safety Report 9064649 (Version 1)
Quarter: 2013Q1

REPORT INFORMATION
  Report Type: Spontaneous
  Country: US (occurrence: US)
  Receive Date: 20130130
  Receipt Date: 20130130
  Transmission Date: 20140127
  Serious: No
  Sender: FDA-Public Use
  Company Number: US-TEVA-383625USA

PATIENT
  Age: 3 Decade
  Sex: Male

DRUGS (1)
  1. QNASL [Suspect]

REACTIONS (2)
  - Tachycardia [Unknown]
  - Headache [Unknown]
